FAERS Safety Report 5204428-1 (Version None)
Quarter: 2007Q1

REPORT INFORMATION
  Report Type: 
  Country: None (occurrence: None)
  Receive Date: 20070110
  Receipt Date: 20060612
  Transmission Date: 20070707
  Serious: Yes (Hospitalization)
  Sender: FDA-Public Use
  Company Number: US-BRISTOL-MYERS SQUIBB COMPANY-13323506

PATIENT
  Age: 59 Year
  Sex: Female

DRUGS (11)
  1. ABILIFY [Suspect]
     Indication: BIPOLAR DISORDER
     Dosage: 10 MG DAILY X 2 DAYS, THEN REDUCED TO 5 MG X FEW DAYS, AND 2.5 MG FROM 10-JAN-2006 TO 17-MAR-2006.
     Route: 048
     Dates: start: 20060107, end: 20060317
  2. EFFEXOR XR [Concomitant]
  3. NEURONTIN [Concomitant]
  4. SEROQUEL [Concomitant]
  5. REGLAN [Concomitant]
     Dates: end: 20060216
  6. INDERAL [Concomitant]
  7. DARVOCET [Concomitant]
  8. RELAFEN [Concomitant]
  9. NEXIUM [Concomitant]
  10. SYNTHROID [Concomitant]
  11. ASPIRIN [Concomitant]

REACTIONS (1)
  - TARDIVE DYSKINESIA [None]
